FAERS Safety Report 4434825-3 (Version None)
Quarter: 2004Q3

REPORT INFORMATION
  Report Type: 
  Country: None (occurrence: None)
  Receive Date: 20040726
  Receipt Date: 20040510
  Transmission Date: 20050211
  Serious: No
  Sender: FDA-Public Use
  Company Number: US_0405102933

PATIENT
  Sex: Male

DRUGS (1)
  1. FORTEO [Suspect]
     Indication: OSTEOPOROSIS
     Dosage: 20 UG DAY

REACTIONS (2)
  - GOUT [None]
  - HYPERURICAEMIA [None]
